FAERS Safety Report 9421899 (Version 2)
Quarter: 2013Q4

REPORT INFORMATION
  Report Type: Spontaneous
  Country: US (occurrence: US)
  Receive Date: 20130726
  Receipt Date: 20131115
  Transmission Date: 20140711
  Serious: No
  Sender: FDA-Public Use
  Company Number: US-PFIZER INC-2013217891

PATIENT
  Age: 58 Year
  Sex: Female
  Weight: 89.8 kg

DRUGS (4)
  1. CELEBREX [Suspect]
     Indication: ARTHRITIS
     Dosage: 200 MG, 3X/DAY
     Route: 048
  2. CELEBREX [Interacting]
     Dosage: 200 MG, 2X/DAY
     Route: 048
     Dates: end: 20130720
  3. LYRICA [Interacting]
     Indication: HYPOAESTHESIA
     Dosage: 50 MG, 2X/DAY
     Route: 048
  4. LYRICA [Interacting]
     Indication: DIABETIC NEUROPATHY
     Dosage: 75 MG, 3X/DAY
     Route: 048

REACTIONS (3)
  - Off label use [Unknown]
  - Drug interaction [Unknown]
  - Dizziness [Unknown]
